FAERS Safety Report 25180082 (Version 1)
Quarter: 2025Q2

REPORT INFORMATION
  Report Type: Spontaneous
  Country: US (occurrence: None)
  Receive Date: 20250409
  Receipt Date: 20250409
  Transmission Date: 20250716
  Serious: Yes (Hospitalization)
  Sender: FDA-CTU
  Company Number: None

PATIENT
  Age: 78 Year
  Sex: Male
  Weight: 92 kg

DRUGS (1)
  1. DARATUMUMAB\HYALURONIDASE-FIHJ [Suspect]
     Active Substance: DARATUMUMAB\HYALURONIDASE-FIHJ
     Indication: Plasma cell myeloma
     Route: 058
     Dates: start: 20241107

REACTIONS (6)
  - Pyrexia [None]
  - Hyperglycaemia [None]
  - Hypotension [None]
  - Tremor [None]
  - Blood lactic acid increased [None]
  - Infusion related reaction [None]

NARRATIVE: CASE EVENT DATE: 20241107
